FAERS Safety Report 6403580-X (Version None)
Quarter: 2009Q4

REPORT INFORMATION
  Report Type: 
  Country: None (occurrence: None)
  Receive Date: 20091015
  Receipt Date: 20091015
  Transmission Date: 20100525
  Serious: No
  Sender: FDA-Public Use
  Company Number: None

PATIENT
  Age: 68 Year
  Sex: Female
  Weight: 77.1115 kg

DRUGS (1)
  1. FEMARA [Suspect]
     Indication: MASTECTOMY
     Dosage: 2.5 1 DAILY PO
     Route: 048
     Dates: start: 20090601, end: 20091001

REACTIONS (3)
  - ALOPECIA [None]
  - HYPERTENSION [None]
  - INSOMNIA [None]
